FAERS Safety Report 15943084 (Version 5)
Quarter: 2019Q3

REPORT INFORMATION
  Report Type: Spontaneous
  Country: US (occurrence: US)
  Receive Date: 20190210
  Receipt Date: 20190730
  Transmission Date: 20191004
  Serious: Yes (Other)
  Sender: FDA-Public Use
  Company Number: US-ASTRAZENECA-2018SF25688

PATIENT
  Age: 18593 Day
  Sex: Male
  Weight: 106.6 kg

DRUGS (23)
  1. PRILOSEC OTC [Suspect]
     Active Substance: OMEPRAZOLE MAGNESIUM
     Indication: GASTROOESOPHAGEAL REFLUX DISEASE
     Route: 048
     Dates: start: 20070201, end: 20070301
  2. ZEGERID [Suspect]
     Active Substance: OMEPRAZOLE\SODIUM BICARBONATE
     Route: 065
  3. METOPROLOL. [Concomitant]
     Active Substance: METOPROLOL
  4. PRILOSEC OTC [Suspect]
     Active Substance: OMEPRAZOLE MAGNESIUM
     Indication: GASTROOESOPHAGEAL REFLUX DISEASE
     Route: 048
  5. NEXIUM [Suspect]
     Active Substance: ESOMEPRAZOLE MAGNESIUM
     Route: 048
  6. PRILOSEC [Suspect]
     Active Substance: OMEPRAZOLE MAGNESIUM
     Indication: GASTROOESOPHAGEAL REFLUX DISEASE
     Route: 048
  7. PREVACID 24 HR [Suspect]
     Active Substance: LANSOPRAZOLE
     Route: 065
  8. BENAZEPRIL [Concomitant]
     Active Substance: BENAZEPRIL HYDROCHLORIDE
     Indication: HYPERTENSION
  9. FUROSEMIDE. [Concomitant]
     Active Substance: FUROSEMIDE
  10. PREVACID [Suspect]
     Active Substance: LANSOPRAZOLE
     Route: 065
  11. PROTONIX [Suspect]
     Active Substance: PANTOPRAZOLE SODIUM
     Indication: GASTROOESOPHAGEAL REFLUX DISEASE
     Route: 065
     Dates: start: 20080411, end: 20121114
  12. PREDNISONE. [Concomitant]
     Active Substance: PREDNISONE
  13. TACROLIMUS. [Concomitant]
     Active Substance: TACROLIMUS
  14. SIMVASTATIN. [Concomitant]
     Active Substance: SIMVASTATIN
  15. PRILOSEC OTC [Suspect]
     Active Substance: OMEPRAZOLE MAGNESIUM
     Indication: GASTROOESOPHAGEAL REFLUX DISEASE
     Route: 048
     Dates: start: 200606, end: 200703
  16. NIFEDIPINE. [Concomitant]
     Active Substance: NIFEDIPINE
  17. METOPROLOL. [Concomitant]
     Active Substance: METOPROLOL
     Indication: HYPERTENSION
  18. HUMALOG [Concomitant]
     Active Substance: INSULIN LISPRO
  19. PEPCID [Concomitant]
     Active Substance: FAMOTIDINE
  20. FUROSEMIDE. [Concomitant]
     Active Substance: FUROSEMIDE
     Indication: OEDEMA
  21. NEXIUM 24HR [Suspect]
     Active Substance: ESOMEPRAZOLE MAGNESIUM
     Route: 048
  22. ACIPHEX [Suspect]
     Active Substance: RABEPRAZOLE SODIUM
     Indication: GASTROOESOPHAGEAL REFLUX DISEASE
     Route: 065
     Dates: start: 20071002, end: 20080411
  23. OXYCODONE [Concomitant]
     Active Substance: OXYCODONE
     Indication: PAIN

REACTIONS (8)
  - End stage renal disease [Not Recovered/Not Resolved]
  - Renal failure [Unknown]
  - Hyperparathyroidism secondary [Unknown]
  - Nephrogenic anaemia [Unknown]
  - Chronic kidney disease [Not Recovered/Not Resolved]
  - Acute kidney injury [Not Recovered/Not Resolved]
  - Renal injury [Unknown]
  - Chronic kidney disease-mineral and bone disorder [Unknown]

NARRATIVE: CASE EVENT DATE: 20071002
